FAERS Safety Report 9880250 (Version 1)
Quarter: 2014Q1

REPORT INFORMATION
  Report Type: Spontaneous
  Country: US (occurrence: US)
  Receive Date: 20140207
  Receipt Date: 20140207
  Transmission Date: 20141002
  Serious: Yes (Hospitalization, Other)
  Sender: FDA-Public Use
  Company Number: US-ASTRAZENECA-2014SE07390

PATIENT
  Age: 78 Year
  Sex: Female
  Weight: 76.2 kg

DRUGS (10)
  1. ZESTRIL [Suspect]
     Indication: HYPERTENSION
     Route: 048
  2. ZESTRIL [Suspect]
     Indication: HYPERTENSION
     Dosage: GENERIC, 40 MG, TWO TIMES A DAY
     Route: 048
  3. ZESTRIL [Suspect]
     Indication: HYPERTENSION
     Route: 048
  4. TOPROL XL [Suspect]
     Route: 048
  5. TOPROL XL [Suspect]
     Route: 048
  6. TOPROL XL [Suspect]
     Dosage: GENERIC
     Route: 048
  7. MECLIZINE [Concomitant]
     Indication: DIZZINESS
  8. MECLIZINE [Concomitant]
     Indication: VERTIGO
  9. LIPITOR [Concomitant]
     Indication: BLOOD CHOLESTEROL ABNORMAL
  10. HYDROCHLOROTHIAZIDE [Concomitant]
     Indication: DIURETIC THERAPY
     Dates: start: 201308

REACTIONS (15)
  - Dysphagia [Unknown]
  - Fluid intake reduced [Unknown]
  - Choking [Unknown]
  - Heart rate increased [Unknown]
  - Hypertension [Unknown]
  - Feeling abnormal [Unknown]
  - Drug intolerance [Unknown]
  - Oropharyngeal pain [Unknown]
  - Malaise [Unknown]
  - Blood pressure inadequately controlled [Unknown]
  - Restlessness [Unknown]
  - Insomnia [Unknown]
  - Renal disorder [Unknown]
  - Dizziness [Unknown]
  - Off label use [Unknown]
